FAERS Safety Report 16869090 (Version 1)
Quarter: 2019Q3

REPORT INFORMATION
  Report Type: Spontaneous
  Country: IN (occurrence: IN)
  Receive Date: 20190930
  Receipt Date: 20190930
  Transmission Date: 20191005
  Serious: Yes (Death)
  Sender: FDA-Public Use
  Company Number: IN-PFIZER INC-2019422367

PATIENT

DRUGS (2)
  1. INLYTA [Suspect]
     Active Substance: AXITINIB
  2. INLYTA [Suspect]
     Active Substance: AXITINIB
     Dosage: UNK

REACTIONS (1)
  - Death [Fatal]
